FAERS Safety Report 23229317 (Version 2)
Quarter: 2023Q4

REPORT INFORMATION
  Report Type: Spontaneous
  Country: US (occurrence: None)
  Receive Date: 20231127
  Receipt Date: 20231204
  Transmission Date: 20240109
  Serious: No
  Sender: FDA-Public Use
  Company Number: 2023A262940

PATIENT
  Sex: Male

DRUGS (1)
  1. BREZTRI [Suspect]
     Active Substance: BUDESONIDE\FORMOTEROL\GLYCOPYRROLATE
     Dosage: 2, TWO TIMES A DAY
     Route: 055

REACTIONS (6)
  - Back pain [Not Recovered/Not Resolved]
  - Sinus disorder [Unknown]
  - Pharyngitis [Unknown]
  - Laryngitis [Unknown]
  - Muscle spasms [Not Recovered/Not Resolved]
  - Product label issue [Unknown]
